FAERS Safety Report 8482665-0 (Version None)
Quarter: 2012Q3

REPORT INFORMATION
  Report Type: 
  Country: None (occurrence: None)
  Receive Date: 20120702
  Receipt Date: 20120627
  Transmission Date: 20120928
  Serious: Yes (Hospitalization)
  Sender: FDA-Public Use
  Company Number: US-MERCK-1203USA00787

PATIENT
  Age: 63 Year
  Sex: Female
  Weight: 59 kg

DRUGS (4)
  1. FOSAMAX [Suspect]
     Route: 048
     Dates: start: 20020401
  2. HORMONES (UNSPECIFIED) [Concomitant]
     Route: 065
     Dates: start: 20000101, end: 20100101
  3. FOSAMAX [Suspect]
     Indication: OSTEOPENIA
     Route: 048
     Dates: start: 20010720, end: 20081101
  4. SYNTHROID [Concomitant]
     Indication: HYPOTHYROIDISM
     Route: 048
     Dates: start: 20000101

REACTIONS (11)
  - PATELLOFEMORAL PAIN SYNDROME [None]
  - FALL [None]
  - MENISCUS LESION [None]
  - OSTEOMA [None]
  - MUSCLE STRAIN [None]
  - FEMUR FRACTURE [None]
  - DIZZINESS [None]
  - DEVICE FAILURE [None]
  - PAIN IN EXTREMITY [None]
  - OSTEOARTHRITIS [None]
  - ARTHRALGIA [None]
